FAERS Safety Report 6359202-X (Version None)
Quarter: 2009Q3

REPORT INFORMATION
  Report Type: 
  Country: None (occurrence: None)
  Receive Date: 20090917
  Receipt Date: 20070516
  Transmission Date: 20100115
  Serious: Yes (Other)
  Sender: FDA-Public Use
  Company Number: US-ASTRAZENECA-2006UW26317

PATIENT
  Age: 45 Year
  Sex: Female
  Weight: 69.4 kg

DRUGS (12)
  1. SEROQUEL [Suspect]
     Indication: SCHIZOPHRENIA
     Route: 048
     Dates: start: 20030101
  2. SEROQUEL [Suspect]
     Indication: BIPOLAR DISORDER
     Route: 048
     Dates: start: 20030101
  3. SEROQUEL [Suspect]
     Indication: DEPRESSION
     Route: 048
     Dates: start: 20030101
  4. SEROQUEL [Suspect]
     Dosage: 50 MG-400 MG
     Route: 048
     Dates: start: 20030401
  5. SEROQUEL [Suspect]
     Dosage: 50 MG-400 MG
     Route: 048
     Dates: start: 20030401
  6. SEROQUEL [Suspect]
     Dosage: 50 MG-400 MG
     Route: 048
     Dates: start: 20030401
  7. ABILIFY [Concomitant]
  8. ZYPREXA [Concomitant]
  9. RISPERDAL [Concomitant]
     Dosage: 2 MG-8 MG
     Dates: start: 20030401
  10. DEPAKOTE [Concomitant]
     Dosage: 250 MG-1500 MG
     Dates: start: 20030401
  11. CYCLOBENZAPRINE [Concomitant]
     Dates: start: 19990402
  12. BONTRIL [Concomitant]
     Dates: start: 20060330

REACTIONS (4)
  - DIABETES MELLITUS [None]
  - HYPERGLYCAEMIA [None]
  - MONONEUROPATHY [None]
  - OBESITY [None]
